FAERS Safety Report 26147640 (Version 1)
Quarter: 2025Q4

REPORT INFORMATION
  Report Type: Spontaneous
  Country: EU (occurrence: EU)
  Receive Date: 20251211
  Receipt Date: 20251211
  Transmission Date: 20260118
  Serious: Yes (Hospitalization, Other)
  Sender: BAXTER
  Company Number: None

PATIENT
  Age: 51 Year
  Sex: Male

DRUGS (6)
  1. BENDAMUSTINE [Suspect]
     Active Substance: BENDAMUSTINE
     Indication: Neoplasm malignant
     Dosage: C1J1
     Route: 042
     Dates: start: 20250911, end: 20250911
  2. BENDAMUSTINE [Suspect]
     Active Substance: BENDAMUSTINE
     Dosage: C2J1
     Route: 042
     Dates: start: 20251006, end: 20251006
  3. BRENTUXIMAB VEDOTIN [Suspect]
     Active Substance: BRENTUXIMAB VEDOTIN
     Indication: Neoplasm malignant
     Dosage: C1J1
     Route: 042
     Dates: start: 20250911, end: 20250911
  4. BRENTUXIMAB VEDOTIN [Suspect]
     Active Substance: BRENTUXIMAB VEDOTIN
     Dosage: C2J1
     Route: 042
     Dates: start: 20251006, end: 20251006
  5. VALACYCLOVIR HYDROCHLORIDE [Concomitant]
     Active Substance: VALACYCLOVIR HYDROCHLORIDE
     Dosage: UNK
     Route: 065
  6. BACTRIM [Concomitant]
     Active Substance: SULFAMETHOXAZOLE\TRIMETHOPRIM
     Dosage: UNK
     Route: 065

REACTIONS (2)
  - Rash maculo-papular [Recovering/Resolving]
  - Drug reaction with eosinophilia and systemic symptoms [Recovering/Resolving]

NARRATIVE: CASE EVENT DATE: 20251007
